FAERS Safety Report 16480594 (Version 5)
Quarter: 2019Q4

REPORT INFORMATION
  Report Type: Spontaneous
  Country: US (occurrence: US)
  Receive Date: 20190626
  Receipt Date: 20191107
  Transmission Date: 20200122
  Serious: Yes (Hospitalization, Other)
  Sender: FDA-Public Use
  Company Number: US-PFIZER INC-2019272723

PATIENT
  Age: 58 Year
  Sex: Female

DRUGS (1)
  1. XELJANZ XR [Suspect]
     Active Substance: TOFACITINIB CITRATE
     Dosage: 11 MG, UNK
     Dates: start: 201902

REACTIONS (9)
  - Infection [Recovering/Resolving]
  - Cardiac disorder [Unknown]
  - Asthma [Unknown]
  - Cellulitis [Unknown]
  - Weight increased [Unknown]
  - Malaise [Unknown]
  - Vomiting [Unknown]
  - Pulmonary oedema [Unknown]
  - Respiratory syncytial virus infection [Unknown]

NARRATIVE: CASE EVENT DATE: 2019
